FAERS Safety Report 19002028 (Version 2)
Quarter: 2021Q1

REPORT INFORMATION
  Report Type: Spontaneous
  Country: US (occurrence: US)
  Receive Date: 20210312
  Receipt Date: 20210326
  Transmission Date: 20210420
  Serious: No
  Sender: FDA-Public Use
  Company Number: US-JNJFOC-20210305954

PATIENT
  Age: 76 Year
  Sex: Male
  Weight: 108.96 kg

DRUGS (1)
  1. TYLENOL [Suspect]
     Active Substance: ACETAMINOPHEN
     Indication: BURSITIS
     Route: 065
     Dates: start: 202102

REACTIONS (1)
  - Drug ineffective [Unknown]
